FAERS Safety Report 5387669-2 (Version None)
Quarter: 2007Q3

REPORT INFORMATION
  Report Type: 
  Country: None (occurrence: None)
  Receive Date: 20070712
  Receipt Date: 20070706
  Transmission Date: 20080115
  Serious: Yes (Life-Threatening, Hospitalization)
  Sender: FDA-Public Use
  Company Number: SP00091(3)

PATIENT
  Age: 31 Year
  Sex: Male
  Weight: 70 kg

DRUGS (3)
  1. COLAZAL [Suspect]
     Indication: PROCTOCOLITIS
     Dosage: 3 GR/DAY, ORAL
     Route: 048
     Dates: start: 20030206, end: 20030212
  2. SULFASALAZINE [Suspect]
     Indication: PROCTOCOLITIS
     Dates: start: 20030101, end: 20030122
  3. PREDNISONE [Concomitant]

REACTIONS (11)
  - ACUTE RESPIRATORY FAILURE [None]
  - ANGIOEDEMA [None]
  - APHTHOUS STOMATITIS [None]
  - DISSEMINATED INTRAVASCULAR COAGULATION [None]
  - EOSINOPHILIA [None]
  - LEUKOCYTOSIS [None]
  - LIVER FUNCTION TEST ABNORMAL [None]
  - LUNG INFILTRATION [None]
  - LYMPHADENOPATHY [None]
  - SPLENOMEGALY [None]
  - TOXIC EPIDERMAL NECROLYSIS [None]
